FAERS Safety Report 7121837-4 (Version None)
Quarter: 2010Q4

REPORT INFORMATION
  Report Type: 
  Country: None (occurrence: None)
  Receive Date: 20101124
  Receipt Date: 20101116
  Transmission Date: 20110411
  Serious: Yes (Hospitalization, Other)
  Sender: FDA-Public Use
  Company Number: IE-ROCHE-738245

PATIENT
  Sex: Male
  Weight: 99 kg

DRUGS (9)
  1. MIRCERA [Suspect]
     Dosage: FREQUENCY: FORTNIGHTLY
     Route: 058
     Dates: start: 20100101
  2. MIRCERA [Suspect]
     Route: 058
  3. MIRCERA [Suspect]
     Route: 058
     Dates: end: 20101004
  4. MIRCERA [Suspect]
     Route: 058
  5. NOVOMIX [Concomitant]
     Dosage: DOSE: 19,12 , OD
     Route: 058
  6. WARFARIN [Concomitant]
     Dosage: OD
     Route: 048
  7. DOXAZOSIN MESYLATE [Concomitant]
  8. AMLODIPINE [Concomitant]
  9. FENOFIBRATE [Concomitant]

REACTIONS (2)
  - CEREBRAL INFARCTION [None]
  - TRANSIENT ISCHAEMIC ATTACK [None]
